FAERS Safety Report 10653484 (Version 1)
Quarter: 2014Q4

REPORT INFORMATION
  Report Type: Report from Study
  Country: CO (occurrence: CO)
  Receive Date: 20141216
  Receipt Date: 20141216
  Transmission Date: 20150529
  Serious: Yes (Death, Hospitalization, Other)
  Sender: FDA-Public Use
  Company Number: CO-BRISTOL-MYERS SQUIBB COMPANY-BMS-2014-000069

PATIENT

DRUGS (1)
  1. IXABEPILONE [Suspect]
     Active Substance: IXABEPILONE
     Indication: BREAST CANCER METASTATIC
     Dosage: UNK, Q3WK
     Route: 042
     Dates: start: 20140815

REACTIONS (4)
  - Respiratory arrest [Fatal]
  - Language disorder [Unknown]
  - Malignant neoplasm progression [Unknown]
  - Mobility decreased [Unknown]

NARRATIVE: CASE EVENT DATE: 20141101
